FAERS Safety Report 21172730 (Version 3)
Quarter: 2022Q3

REPORT INFORMATION
  Report Type: Report from Study
  Country: AR (occurrence: AR)
  Receive Date: 20220804
  Receipt Date: 20220811
  Transmission Date: 20221027
  Serious: Yes (Death, Hospitalization, Other)
  Sender: FDA-Public Use
  Company Number: AR-BRISTOL-MYERS SQUIBB COMPANY-2022-084750

PATIENT
  Age: 75 Year
  Sex: Male
  Weight: 48 kg

DRUGS (1)
  1. NIVOLUMAB [Suspect]
     Active Substance: NIVOLUMAB
     Indication: Neoplasm
     Dosage: MOST RECENT DOSE ON 20-JUL-2022?DOSE WAS DEALYED WITH RESPECT TO THE EVENT OF DYSPNOEA
     Route: 042
     Dates: start: 20220330

REACTIONS (2)
  - Dyspnoea [Recovering/Resolving]
  - Sudden death [Fatal]

NARRATIVE: CASE EVENT DATE: 20220727
